FAERS Safety Report 7331422-7 (Version None)
Quarter: 2011Q1

REPORT INFORMATION
  Report Type: 
  Country: None (occurrence: None)
  Receive Date: 20110304
  Receipt Date: 20110228
  Transmission Date: 20110831
  Serious: Yes (Other)
  Sender: FDA-Public Use
  Company Number: US-PFIZER INC-2005092344

PATIENT
  Sex: Male

DRUGS (9)
  1. LORAZEPAM [Concomitant]
     Dosage: UNK
     Dates: start: 20030601, end: 20031201
  2. CLONAZEPAM [Concomitant]
     Dosage: UNK
     Dates: start: 20030701, end: 20031201
  3. AMBIEN [Concomitant]
     Dosage: UNK
     Dates: start: 20030701, end: 20031201
  4. COZAAR [Concomitant]
     Dosage: UNK
     Dates: start: 19930201
  5. CARBON MONOXIDE [Suspect]
     Indication: SUICIDE ATTEMPT
     Route: 065
     Dates: start: 20031201
  6. GABITRIL [Concomitant]
     Dates: start: 20030901, end: 20031201
  7. NEURONTIN [Suspect]
     Indication: DEPRESSION
     Dosage: 300 MG
     Dates: start: 20030601, end: 20031201
  8. PAXIL [Concomitant]
     Dosage: UNK
     Dates: start: 20030601, end: 20031201
  9. SEROQUEL [Concomitant]
     Dosage: UNK
     Dates: start: 20030701, end: 20031201

REACTIONS (10)
  - CARBON MONOXIDE POISONING [None]
  - DRUG INEFFECTIVE [None]
  - HOSTILITY [None]
  - SUICIDE ATTEMPT [None]
  - AGGRESSION [None]
  - IRRITABILITY [None]
  - DEPRESSION [None]
  - AMNESIA [None]
  - IMPULSIVE BEHAVIOUR [None]
  - INSOMNIA [None]
